FAERS Safety Report 14163452 (Version 2)
Quarter: 2017Q4

REPORT INFORMATION
  Report Type: Report from Study
  Country: US (occurrence: AR)
  Receive Date: 20171106
  Receipt Date: 20171204
  Transmission Date: 20180321
  Serious: Yes (Other)
  Sender: FDA-Public Use
  Company Number: US-SUNOVION-2017SUN004794

PATIENT
  Sex: Male

DRUGS (3)
  1. T4 [Concomitant]
     Active Substance: LEVOTHYROXINE
  2. GLUCOFAGE [Concomitant]
     Active Substance: METFORMIN HYDROCHLORIDE
     Dosage: 500 MG, UNK
  3. INDACATEROL [Suspect]
     Active Substance: INDACATEROL
     Indication: CHRONIC OBSTRUCTIVE PULMONARY DISEASE
     Dosage: 300 OT, UNK
     Route: 065

REACTIONS (4)
  - Fatigue [Unknown]
  - Aortic stenosis [Unknown]
  - Total lung capacity [Unknown]
  - Respiration abnormal [Unknown]
